FAERS Safety Report 8739985 (Version 2)
Quarter: 2013Q4

REPORT INFORMATION
  Report Type: Spontaneous
  Country: FR (occurrence: FR)
  Receive Date: 20120823
  Receipt Date: 20131031
  Transmission Date: 20140711
  Serious: Yes (Death)
  Sender: FDA-Public Use
  Company Number: FR-009507513-1208FRA007787

PATIENT
  Age: 73 Year
  Sex: Female

DRUGS (9)
  1. JANUMET [Suspect]
     Indication: TYPE 2 DIABETES MELLITUS
     Dosage: UNK
     Route: 048
  2. ATARAX (HYDROXYZINE HYDROCHLORIDE) [Concomitant]
     Route: 048
  3. BISOPROLOL [Concomitant]
     Route: 048
  4. COVERSYL (PERINDOPRIL ARGININE) [Concomitant]
     Route: 048
  5. LASILIX [Concomitant]
     Route: 048
  6. ACETAMINOPHEN [Concomitant]
     Route: 048
  7. PREVISCAN [Concomitant]
     Route: 048
  8. SIMVASTATIN [Concomitant]
     Route: 048
  9. TARDYFERON [Concomitant]
     Route: 048

REACTIONS (1)
  - Lactic acidosis [Fatal]
